FAERS Safety Report 23234516 (Version 1)
Quarter: 2023Q4

REPORT INFORMATION
  Report Type: Spontaneous
  Country: GB (occurrence: GB)
  Receive Date: 20231128
  Receipt Date: 20231128
  Transmission Date: 20240110
  Serious: Yes (Hospitalization, Other)
  Sender: FDA-Public Use
  Company Number: GB-MHRA-ADR 28318969

PATIENT

DRUGS (8)
  1. IPRATROPIUM [Suspect]
     Active Substance: IPRATROPIUM
     Indication: COVID-19 immunisation
     Dosage: 1 DOSAGE FORM
     Route: 065
     Dates: start: 20220907
  2. ALBUTEROL [Suspect]
     Active Substance: ALBUTEROL
     Indication: COVID-19 immunisation
     Dosage: 1 DOSAGE FORM (INJECTION)
     Route: 065
     Dates: start: 20220907
  3. TRAMADOL [Concomitant]
     Active Substance: TRAMADOL\TRAMADOL HYDROCHLORIDE
     Indication: Product used for unknown indication
     Dosage: UNK
     Route: 065
  4. MELATONIN [Concomitant]
     Active Substance: MELATONIN
     Indication: Product used for unknown indication
     Dosage: UNK
     Route: 065
  5. LEVOTHYROXINE [Concomitant]
     Active Substance: LEVOTHYROXINE
     Indication: Product used for unknown indication
     Dosage: UNK
     Route: 065
  6. MIRTAZAPINE [Concomitant]
     Active Substance: MIRTAZAPINE
     Indication: Tension
     Dosage: UNK
     Route: 065
  7. BECLOMETHASONE\FORMOTEROL [Concomitant]
     Active Substance: BECLOMETHASONE\FORMOTEROL
     Indication: Pneumonia
     Dosage: UNK
     Route: 065
     Dates: start: 20220810, end: 2023
  8. MONTELUKAST [Concomitant]
     Active Substance: MONTELUKAST SODIUM
     Indication: Pneumonia
     Dosage: UNK
     Route: 065
     Dates: start: 20220810, end: 2023

REACTIONS (3)
  - Pneumonia [Not Recovered/Not Resolved]
  - Hyperventilation [Unknown]
  - Hypertension [Unknown]

NARRATIVE: CASE EVENT DATE: 20221004
